FAERS Safety Report 4275732-9 (Version None)
Quarter: 2004Q1

REPORT INFORMATION
  Report Type: 
  Country: None (occurrence: None)
  Receive Date: 20040121
  Receipt Date: 20040108
  Transmission Date: 20041129
  Serious: Yes (Hospitalization)
  Sender: FDA-Public Use
  Company Number: PHBS2004BR00583

PATIENT
  Age: 24 Year
  Sex: Female
  Weight: 80 kg

DRUGS (1)
  1. TEGRETOL [Suspect]
     Dosage: 40 TO 50 TABLETS/ONCE SINGLE
     Route: 048
     Dates: start: 20040107, end: 20040107

REACTIONS (7)
  - CRYING [None]
  - DYSPHONIA [None]
  - EPILEPSY [None]
  - INTENTIONAL OVERDOSE [None]
  - SOMNOLENCE [None]
  - SUICIDE ATTEMPT [None]
  - UNRESPONSIVE TO PAIN STIMULI [None]
